FAERS Safety Report 5156891-2 (Version None)
Quarter: 2006Q4

REPORT INFORMATION
  Report Type: 
  Country: None (occurrence: None)
  Receive Date: 20060918
  Receipt Date: 20060714
  Transmission Date: 20070319
  Serious: Yes (Other)
  Sender: FDA-Public Use
  Company Number: US-JNJFOC-20060606278

PATIENT
  Age: 53 Year
  Sex: Female
  Weight: 57.1532 kg

DRUGS (4)
  1. TOPAMAX [Suspect]
     Indication: MIGRAINE
     Dosage: 100 MG, 1 IN 1 DAY, ORAL
     Route: 048
     Dates: start: 20050201
  2. MAXALT [Concomitant]
  3. ACETAMINOPHEN [Concomitant]
  4. HYDROCODONE BITARTRATE [Concomitant]

REACTIONS (6)
  - DECREASED APPETITE [None]
  - DYSGEUSIA [None]
  - HEADACHE [None]
  - MIGRAINE [None]
  - VOMITING [None]
  - WEIGHT DECREASED [None]
